FAERS Safety Report 8734350 (Version 2)
Quarter: 2012Q4

REPORT INFORMATION
  Report Type: 
  Country: GB (occurrence: GB)
  Receive Date: 20120821
  Receipt Date: 20120914
  Transmission Date: 20130627
  Serious: Yes (Other)
  Sender: FDA-Public Use
  Company Number: GB-PFIZER INC-2012174662

PATIENT
  Age: 69 Year
  Sex: Female

DRUGS (15)
  1. DETRUSITOL [Suspect]
     Dosage: 4 mg, 1x/day
     Route: 048
  2. NAPROXEN [Concomitant]
     Dosage: 500 mg, 1x/day
     Route: 048
  3. FLUOXETINE [Concomitant]
     Dosage: 20 mg, 1x/day
     Route: 048
  4. LANSOPRAZOLE [Concomitant]
     Dosage: 30 mg, 1x/day
     Route: 048
  5. PRAVASTATIN [Concomitant]
     Dosage: 40 mg, 1x/day
     Route: 048
  6. PARACETAMOL [Concomitant]
     Dosage: 1000 mg, 4x/day
     Route: 048
  7. MOTILIUM [Concomitant]
     Dosage: 10 mg, 3x/day
  8. LISINOPRIL [Concomitant]
     Dosage: 10 mg, 1x/day
  9. SENNA [Concomitant]
     Dosage: 7.5 mg, 1-2 tablets at night
  10. CHLORPHENAMINE [Concomitant]
     Dosage: 4 mg, 2-3 tablets at night
  11. BENDROFLUMETHIAZIDE [Concomitant]
     Dosage: 2.5 mg, 1x/day
  12. AMITRIPTYLINE [Concomitant]
     Dosage: 10 mg, 1 tablet at night
  13. SALBUTAMOL [Concomitant]
     Dosage: 100 mg, as needed
  14. CLENIL MODULITE [Concomitant]
     Dosage: 200 mg, 2x/day
  15. TRAMADOL [Concomitant]
     Dosage: 50 mg, 1-2 four times a day as required

REACTIONS (3)
  - Capsule physical issue [Recovered/Resolved]
  - Urinary incontinence [Recovered/Resolved]
  - Drug ineffective [Recovered/Resolved]
